FAERS Safety Report 11780954 (Version 1)
Quarter: 2015Q4

REPORT INFORMATION
  Report Type: Other
  Country: US (occurrence: US)
  Receive Date: 20151126
  Receipt Date: 20151126
  Transmission Date: 20160305
  Serious: Yes (Hospitalization)
  Sender: FDA-Public Use
  Company Number: US-JUBILANT GENERICS LIMITED-1044688

PATIENT
  Age: 29 Year
  Sex: Female

DRUGS (2)
  1. ESCITALOPRAM [Concomitant]
     Active Substance: ESCITALOPRAM OXALATE
  2. BUPROPION. [Suspect]
     Active Substance: BUPROPION

REACTIONS (3)
  - Lactic acidosis [Recovered/Resolved]
  - Anaphylactic reaction [Recovered/Resolved]
  - Anaphylactoid reaction [None]

NARRATIVE: CASE EVENT DATE: 20151118
